FAERS Safety Report 5796870-5 (Version None)
Quarter: 2008Q2

REPORT INFORMATION
  Report Type: 
  Country: None (occurrence: None)
  Receive Date: 20080627
  Receipt Date: 20080326
  Transmission Date: 20081010
  Serious: Yes (Disabling, Other)
  Sender: FDA-Public Use
  Company Number: 2007BM000205

PATIENT
  Age: 7 Year
  Sex: Male
  Weight: 14.6 kg

DRUGS (6)
  1. NAGLAZYME [Suspect]
     Indication: MUCOPOLYSACCHARIDOSIS VI
     Dosage: 1.5 ML QM INTH; 15 MG X1 IV; 15 MG X1 IV; 1.5 ML X1 INTH; 15 MG X1 IV; 1 ML/KG QW IV
     Dates: start: 20070101, end: 20070101
  2. NAGLAZYME [Suspect]
     Indication: MUCOPOLYSACCHARIDOSIS VI
     Dosage: 1.5 ML QM INTH; 15 MG X1 IV; 15 MG X1 IV; 1.5 ML X1 INTH; 15 MG X1 IV; 1 ML/KG QW IV
     Dates: start: 20070316, end: 20070622
  3. NAGLAZYME [Suspect]
     Indication: MUCOPOLYSACCHARIDOSIS VI
     Dosage: 1.5 ML QM INTH; 15 MG X1 IV; 15 MG X1 IV; 1.5 ML X1 INTH; 15 MG X1 IV; 1 ML/KG QW IV
     Dates: start: 20071108, end: 20071108
  4. NAGLAZYME [Suspect]
     Indication: MUCOPOLYSACCHARIDOSIS VI
     Dosage: 1.5 ML QM INTH; 15 MG X1 IV; 15 MG X1 IV; 1.5 ML X1 INTH; 15 MG X1 IV; 1 ML/KG QW IV
     Dates: start: 20071122, end: 20071122
  5. NAGLAZYME [Suspect]
     Indication: MUCOPOLYSACCHARIDOSIS VI
     Dosage: 1.5 ML QM INTH; 15 MG X1 IV; 15 MG X1 IV; 1.5 ML X1 INTH; 15 MG X1 IV; 1 ML/KG QW IV
     Dates: start: 20071220, end: 20071220
  6. NAGLAZYME [Suspect]
     Indication: MUCOPOLYSACCHARIDOSIS VI
     Dosage: 1.5 ML QM INTH; 15 MG X1 IV; 15 MG X1 IV; 1.5 ML X1 INTH; 15 MG X1 IV; 1 ML/KG QW IV
     Dates: end: 20080320

REACTIONS (11)
  - CONDITION AGGRAVATED [None]
  - DISEASE PROGRESSION [None]
  - GAIT DISTURBANCE [None]
  - GENERAL PHYSICAL HEALTH DETERIORATION [None]
  - HYPOTONIA [None]
  - MUSCLE SPASTICITY [None]
  - MUSCULAR WEAKNESS [None]
  - NUCLEAR MAGNETIC RESONANCE IMAGING BRAIN ABNORMAL [None]
  - OXYGEN SATURATION DECREASED [None]
  - SLEEP APNOEA SYNDROME [None]
  - SPINAL CORD COMPRESSION [None]
